FAERS Safety Report 20743187 (Version 1)
Quarter: 2022Q2

REPORT INFORMATION
  Report Type: Report from Study
  Country: BR (occurrence: BR)
  Receive Date: 20220425
  Receipt Date: 20220425
  Transmission Date: 20220720
  Serious: Yes (Other)
  Sender: FDA-Public Use
  Company Number: BR-NOVARTISPH-NVSC2022BR094427

PATIENT
  Sex: Male

DRUGS (1)
  1. TRAVATAN [Suspect]
     Active Substance: TRAVOPROST
     Indication: Cataract
     Dosage: UNK
     Route: 065

REACTIONS (2)
  - Deafness [Unknown]
  - Product dose omission issue [Unknown]
